FAERS Safety Report 4364692-8 (Version None)
Quarter: 2004Q2

REPORT INFORMATION
  Report Type: 
  Country: None (occurrence: None)
  Receive Date: 20040524
  Receipt Date: 20040524
  Transmission Date: 20050107
  Serious: Yes (Hospitalization)
  Sender: FDA-Public Use
  Company Number: None

PATIENT
  Age: 69 Year
  Sex: Male
  Weight: 86.2 kg

DRUGS (9)
  1. INTEGRILIN [Suspect]
     Indication: ANTIPLATELET THERAPY
     Dosage: 2 (7.9 ML BOLUSES), 14 ML/HR IV
     Route: 042
     Dates: start: 20040517, end: 20040518
  2. MIDAZOLAM HCL [Concomitant]
  3. FENTANYL [Concomitant]
  4. NITROGLYCERIN [Concomitant]
  5. CEFAZOLIN [Concomitant]
  6. CLOPIDOGREL BISULFATE [Concomitant]
  7. ASPIRIN [Concomitant]
  8. MUCOMYST [Concomitant]
  9. BENADRYL [Concomitant]

REACTIONS (3)
  - BLOOD CREATINE PHOSPHOKINASE INCREASED [None]
  - BLOOD CREATINE PHOSPHOKINASE MB INCREASED [None]
  - CATHETER SITE HAEMORRHAGE [None]
